FAERS Safety Report 10582551 (Version 3)
Quarter: 2014Q4

REPORT INFORMATION
  Report Type: Report from Study
  Country: US (occurrence: US)
  Receive Date: 20141113
  Receipt Date: 20141205
  Transmission Date: 20150529
  Serious: Yes (Life-Threatening)
  Sender: FDA-Public Use
  Company Number: US-SA-2014SA087028

PATIENT
  Sex: Female

DRUGS (2)
  1. AUBAGIO [Suspect]
     Active Substance: TERIFLUNOMIDE
     Indication: MULTIPLE SCLEROSIS
     Route: 048
     Dates: start: 20140620
  2. AUBAGIO [Suspect]
     Active Substance: TERIFLUNOMIDE
     Indication: MULTIPLE SCLEROSIS
     Route: 048
     Dates: start: 20130620

REACTIONS (4)
  - Hallucination, visual [Unknown]
  - Nephrolithiasis [Unknown]
  - Myocardial infarction [Unknown]
  - Staphylococcal infection [Unknown]

NARRATIVE: CASE EVENT DATE: 2013
